FAERS Safety Report 18457166 (Version 1)
Quarter: 2020Q4

REPORT INFORMATION
  Report Type: Spontaneous
  Country: US (occurrence: US)
  Receive Date: 20201102
  Receipt Date: 20201102
  Transmission Date: 20210114
  Serious: No
  Sender: FDA-Public Use
  Company Number: None

PATIENT
  Age: 73 Year
  Sex: Male
  Weight: 72.45 kg

DRUGS (7)
  1. OXYBUTIN [Concomitant]
     Active Substance: OXYBUTYNIN
  2. NIACIN. [Concomitant]
     Active Substance: NIACIN
  3. VITAMIN B12 [Concomitant]
     Active Substance: CYANOCOBALAMIN
  4. GLUECOSAMINE [Concomitant]
  5. FLOVENT HFA [Suspect]
     Active Substance: FLUTICASONE PROPIONATE
     Indication: ASTHMA
     Dosage: ?          QUANTITY:1 PUFF(S);?
     Route: 055
     Dates: start: 20201028, end: 20201101
  6. RESTASIS [Concomitant]
     Active Substance: CYCLOSPORINE
  7. FLUTICASONE. [Concomitant]
     Active Substance: FLUTICASONE

REACTIONS (2)
  - Product dispensing issue [None]
  - Adverse event [None]

NARRATIVE: CASE EVENT DATE: 20201026
